FAERS Safety Report 20951835 (Version 1)
Quarter: 2022Q2

REPORT INFORMATION
  Report Type: Spontaneous
  Country: US (occurrence: None)
  Receive Date: 20220613
  Receipt Date: 20220613
  Transmission Date: 20220721
  Serious: Yes (Hospitalization)
  Sender: FDA-Public Use
  Company Number: None

PATIENT
  Sex: Male

DRUGS (4)
  1. ENBREL [Suspect]
     Active Substance: ETANERCEPT
     Route: 058
     Dates: start: 20220209
  2. ATORVASTATIN [Concomitant]
     Active Substance: ATORVASTATIN
  3. BAQSIMI TWO POW [Concomitant]
  4. ENBREL SRCLK INJ [Concomitant]

REACTIONS (2)
  - Therapy interrupted [None]
  - Surgery [None]
